FAERS Safety Report 19180529 (Version 1)
Quarter: 2021Q2

REPORT INFORMATION
  Report Type: Spontaneous
  Country: US (occurrence: US)
  Receive Date: 20210426
  Receipt Date: 20210426
  Transmission Date: 20210717
  Serious: No
  Sender: FDA-Public Use
  Company Number: None

PATIENT
  Age: 4 Month
  Sex: Female
  Weight: 50.4 kg

DRUGS (4)
  1. QBREXZA [Suspect]
     Active Substance: GLYCOPYRRONIUM TOSYLATE
     Indication: HYPERHIDROSIS
     Dosage: ?          QUANTITY:5 WIPES;?
     Route: 061
  2. CLINDAMYCIN PHOSPHATE TOPICAL SOLUTION [Concomitant]
     Active Substance: CLINDAMYCIN PHOSPHATE
  3. ESTRADIOL TABLET [Concomitant]
     Active Substance: ESTRADIOL
  4. NORGESTIMATE [Concomitant]
     Active Substance: NORGESTIMATE

REACTIONS (8)
  - Dry throat [None]
  - Vision blurred [None]
  - Dysphagia [None]
  - Dry mouth [None]
  - Tongue discolouration [None]
  - Pharyngeal erythema [None]
  - Choking sensation [None]
  - Nasal dryness [None]

NARRATIVE: CASE EVENT DATE: 20210426
